FAERS Safety Report 7241511-3 (Version None)
Quarter: 2011Q1

REPORT INFORMATION
  Report Type: 
  Country: None (occurrence: None)
  Receive Date: 20110124
  Receipt Date: 20110113
  Transmission Date: 20110831
  Serious: Yes (Hospitalization, Other)
  Sender: FDA-Public Use
  Company Number: GR-ASTRAZENECA-2011SE02761

PATIENT
  Age: 72 Year
  Sex: Female

DRUGS (8)
  1. FENITINA [Interacting]
     Indication: MIGRAINE
     Dosage: CHRONIC USE
  2. CARVEDILOL [Interacting]
  3. ASPIRIN [Concomitant]
     Route: 048
  4. OMEPRAZOLE [Suspect]
     Route: 048
  5. ENTACT [Interacting]
     Dosage: CHRONIC USE
  6. CARVEDILOL [Interacting]
     Route: 048
  7. CARVEDILOL [Interacting]
     Dosage: INCREASED DOSE
  8. OMEPRAZOLE [Interacting]
     Route: 042

REACTIONS (7)
  - ACUTE PULMONARY OEDEMA [None]
  - VENTRICULAR TACHYCARDIA [None]
  - DRUG INTERACTION [None]
  - PRINZMETAL ANGINA [None]
  - ERGOT POISONING [None]
  - ELECTROCARDIOGRAM QT PROLONGED [None]
  - BLOOD PRESSURE ABNORMAL [None]
